FAERS Safety Report 17540170 (Version 1)
Quarter: 2020Q1

REPORT INFORMATION
  Report Type: Spontaneous
  Country: DK (occurrence: DK)
  Receive Date: 20200313
  Receipt Date: 20200313
  Transmission Date: 20200409
  Serious: Yes (Life-Threatening, Hospitalization)
  Sender: FDA-Public Use
  Company Number: DK-ASTRAZENECA-2020SE36252

PATIENT
  Age: 56 Year
  Sex: Male
  Weight: 125 kg

DRUGS (4)
  1. FORXIGA [Suspect]
     Active Substance: DAPAGLIFLOZIN
     Indication: TYPE 1 DIABETES MELLITUS
     Dosage: STRENGHT: 10 MG.
     Route: 048
     Dates: start: 20181121, end: 20200224
  2. NOVORAPID [Concomitant]
     Active Substance: INSULIN ASPART
     Indication: DIABETES MELLITUS
     Dosage: 10 IE MORGEN, 10 IE MIDDAG OG 15 IE AFTEN. STYRKE: 100 E/ML =
     Dates: start: 20150505
  3. LANTUS SOLOSTAR [Concomitant]
     Active Substance: INSULIN GLARGINE
     Indication: DIABETES MELLITUS
     Dosage: 20 IE MORNING AND 70 IE NIGHT
     Dates: start: 20150505, end: 202002
  4. METFORMIN [Concomitant]
     Active Substance: METFORMIN HYDROCHLORIDE
     Indication: DIABETES MELLITUS
     Dosage: STRENGHT: 500 MG.
     Route: 048
     Dates: start: 20160401, end: 202002

REACTIONS (3)
  - Diabetic ketoacidosis [Recovering/Resolving]
  - Renal impairment [Recovering/Resolving]
  - Product use issue [Recovered/Resolved]

NARRATIVE: CASE EVENT DATE: 20200224
